FAERS Safety Report 9115816 (Version 1)
Quarter: 2013Q1

REPORT INFORMATION
  Report Type: Spontaneous
  Country: US (occurrence: US)
  Receive Date: 20130225
  Receipt Date: 20130225
  Transmission Date: 20140127
  Serious: Yes (Death, Hospitalization)
  Sender: FDA-Public Use
  Company Number: US-GLAXOSMITHKLINE-A0790909A

PATIENT
  Age: 73 Year
  Sex: Male

DRUGS (1)
  1. AVANDIA [Suspect]
     Indication: TYPE 2 DIABETES MELLITUS
     Dosage: 2MG PER DAY
     Route: 048
     Dates: start: 20031031, end: 200608

REACTIONS (4)
  - Hypertensive heart disease [Fatal]
  - Acute myocardial infarction [Unknown]
  - Cardiac failure congestive [Unknown]
  - Cardiovascular disorder [Unknown]
